FAERS Safety Report 9779131 (Version 1)
Quarter: 2013Q4

REPORT INFORMATION
  Report Type: Spontaneous
  Country: US (occurrence: US)
  Receive Date: 20131223
  Receipt Date: 20131223
  Transmission Date: 20140711
  Serious: Yes (Other)
  Sender: FDA-Public Use
  Company Number: US-TEVA-452547USA

PATIENT
  Age: 38 Year
  Sex: Female

DRUGS (2)
  1. METRONIDAZOLE [Suspect]
     Dosage: 1000 MILLIGRAM DAILY;
     Route: 048
     Dates: start: 20131209, end: 20131212
  2. NUVARING [Concomitant]

REACTIONS (1)
  - Vaginal haemorrhage [Unknown]
